FAERS Safety Report 6574095-3 (Version None)
Quarter: 2010Q1

REPORT INFORMATION
  Report Type: 
  Country: None (occurrence: None)
  Receive Date: 20100208
  Receipt Date: 20100127
  Transmission Date: 20100710
  Serious: Yes (Hospitalization, Other)
  Sender: FDA-Public Use
  Company Number: DE-ELI_LILLY_AND_COMPANY-DE200912004862

PATIENT
  Age: 55 Year
  Sex: Female

DRUGS (5)
  1. ZYPADHERA [Suspect]
     Dosage: 210 MG, UNK
  2. OLANZAPINE [Suspect]
     Dosage: 1 D/F, UNK
  3. OLANZAPINE [Suspect]
     Dosage: 40 MG, UNK
  4. OLANZAPINE [Suspect]
     Dosage: 10 MG, UNK
     Dates: start: 20100101
  5. SEROQUEL [Concomitant]

REACTIONS (7)
  - AKATHISIA [None]
  - ANXIETY [None]
  - CIRCULATORY COLLAPSE [None]
  - DISORIENTATION [None]
  - DYSARTHRIA [None]
  - OVERDOSE [None]
  - POST PROCEDURAL COMPLICATION [None]
